FAERS Safety Report 9360074 (Version 1)
Quarter: 2013Q2

REPORT INFORMATION
  Report Type: Spontaneous
  Country: US (occurrence: US)
  Receive Date: 20130621
  Receipt Date: 20130621
  Transmission Date: 20140414
  Serious: No
  Sender: FDA-Public Use
  Company Number: US-PFIZER INC-2013183877

PATIENT
  Sex: Female

DRUGS (5)
  1. METHOTREXATE SODIUM [Suspect]
     Dosage: UNK
  2. PLAQUENIL [Suspect]
     Dosage: UNK
  3. REMICADE [Suspect]
     Dosage: UNK
  4. CIMZIA [Suspect]
     Dosage: UNK
  5. ORENCIA [Suspect]
     Dosage: UNK

REACTIONS (1)
  - Drug ineffective [Unknown]
